FAERS Safety Report 8298308-5 (Version None)
Quarter: 2012Q2

REPORT INFORMATION
  Report Type: 
  Country: None (occurrence: None)
  Receive Date: 20120419
  Receipt Date: 20120409
  Transmission Date: 20120825
  Serious: Yes (Hospitalization)
  Sender: FDA-Public Use
  Company Number: GXBR2012US001084

PATIENT
  Sex: Male
  Weight: 92 kg

DRUGS (22)
  1. SEROQUEL [Concomitant]
     Dosage: UNK MG, UNK
  2. COLCHICINE [Concomitant]
     Dosage: UNK MG, UNK
  3. NEURONTIN [Concomitant]
     Dosage: UNK MG, UNK
  4. NEUPOGEN [Concomitant]
     Dosage: UNK DF, UNK
     Dates: start: 20110531
  5. METRONIDAZOLE [Suspect]
     Indication: PROPHYLAXIS
     Dosage: 500 MG, TID
     Route: 048
     Dates: start: 20110604, end: 20110605
  6. FAMVIR [Concomitant]
     Dosage: UNK MG, UNK
  7. MEROPENEM [Suspect]
     Indication: PYREXIA
     Dosage: 1 G, QD
     Route: 042
     Dates: start: 20110606, end: 20110618
  8. VANCOMYCIN [Concomitant]
     Dosage: UNK MG, UNK
     Dates: start: 20110606, end: 20110627
  9. MICAFUNGIN [Concomitant]
     Indication: PROPHYLAXIS
     Dosage: UNK DF, UNK
     Dates: start: 20110606, end: 20110627
  10. RITUXAN [Suspect]
     Indication: MULTIPLE MYELOMA
     Dosage: 200 MG, ONCE/SINGLE
     Dates: start: 20110512, end: 20110512
  11. ASPIRIN [Concomitant]
     Dosage: UNK MG, UNK
  12. MELPHALAN HYDROCHLORIDE [Concomitant]
     Dosage: 384 MG, ONCE/SINGLE
     Dates: start: 20110525
  13. CEFEPIME [Suspect]
     Indication: PYREXIA
     Dosage: 2 G, TID
     Route: 042
     Dates: start: 20110603, end: 20110606
  14. DILAUDID [Concomitant]
     Dosage: UNK MG, UNK
  15. ZEVALIN [Suspect]
     Indication: MULTIPLE MYELOMA
     Dosage: 31.6 MCI, ONCE/SINGLE
     Route: 042
     Dates: start: 20110512, end: 20110512
  16. FENTANYL [Concomitant]
     Dosage: UNK MG, UNK
  17. ATENOLOL [Concomitant]
     Dosage: UNK MG, UNK
  18. ZEVALIN [Suspect]
     Dosage: 4.6 MCI, ONCE/SINGLE
     Route: 042
     Dates: start: 20110503, end: 20110503
  19. RITUXAN [Suspect]
     Dosage: 200 MG, ONCE/SINGLE
     Dates: start: 20110503, end: 20110503
  20. VANCOMYCIN [Concomitant]
     Indication: PYREXIA
     Dosage: UNK MG, UNK
     Dates: start: 20110605, end: 20110606
  21. ALLOPURINOL [Concomitant]
     Dosage: UNK MG, UNK
  22. ATIVAN [Concomitant]
     Dosage: UNK MG, UNK

REACTIONS (7)
  - INJECTION SITE ERYTHEMA [None]
  - FEBRILE NEUTROPENIA [None]
  - PERIRECTAL ABSCESS [None]
  - DIARRHOEA [None]
  - RASH MACULAR [None]
  - INJECTION SITE WARMTH [None]
  - HYPOPHAGIA [None]
